FAERS Safety Report 10528254 (Version 3)
Quarter: 2014Q4

REPORT INFORMATION
  Report Type: Spontaneous
  Country: FR (occurrence: FR)
  Receive Date: 20141020
  Receipt Date: 20141125
  Transmission Date: 20150528
  Serious: Yes (Hospitalization)
  Sender: FDA-Public Use
  Company Number: FR-PFIZER INC-2014282454

PATIENT
  Age: 89 Year
  Sex: Male

DRUGS (8)
  1. MELAXOSE [Suspect]
     Active Substance: LACTULOSE\PARAFFIN
     Dosage: 1 DF, ALTERNATE DAY (ONE SPOON EVERY OTHER DAY)
     Route: 048
     Dates: end: 20140926
  2. ALDACTONE [Suspect]
     Active Substance: SPIRONOLACTONE
     Dosage: 25 MG, DAILY
     Route: 048
     Dates: end: 20140919
  3. ENDOXAN [Suspect]
     Active Substance: CYCLOPHOSPHAMIDE
     Indication: CHRONIC LYMPHOCYTIC LEUKAEMIA
     Dosage: 50 MG, ALTERNATE DAY (1 IN 2 DAYS)
     Route: 048
     Dates: start: 2012, end: 20140922
  4. CORTANCYL [Suspect]
     Active Substance: PREDNISONE
     Dosage: 15 MG, DAILY
     Route: 048
  5. DOLIPRANE [Suspect]
     Active Substance: ACETAMINOPHEN
     Dosage: 1G, 3 TO 4 TIMES DAILY IF NEEDED
     Route: 048
     Dates: end: 20140926
  6. DISCOTRINE [Suspect]
     Active Substance: NITROGLYCERIN
     Dosage: 1/DAY FOR 12 HOURS
     Route: 062
  7. KALEORID [Suspect]
     Active Substance: POTASSIUM CHLORIDE
     Dosage: 600 MG, DAILY
     Route: 048
     Dates: end: 20140926
  8. SPASFON-LYOC [Suspect]
     Active Substance: PHLOROGLUCINOL
     Dosage: 3 DF, DAILY
     Route: 048
     Dates: end: 20140926

REACTIONS (2)
  - Pneumonia [Not Recovered/Not Resolved]
  - Headache [Unknown]

NARRATIVE: CASE EVENT DATE: 20140910
